FAERS Safety Report 5136559-9 (Version None)
Quarter: 2006Q4

REPORT INFORMATION
  Report Type: 
  Country: None (occurrence: None)
  Receive Date: 20061023
  Receipt Date: 20061012
  Transmission Date: 20070319
  Serious: Yes (Other)
  Sender: FDA-Public Use
  Company Number: 2006087076

PATIENT
  Age: 61 Year
  Sex: Female
  Weight: 68.4932 kg

DRUGS (6)
  1. LIPITOR [Suspect]
     Indication: DRUG USE FOR UNKNOWN INDICATION
     Dosage: 325 MG (325 MG, 1 IN 1 D), ORAL
     Route: 048
     Dates: end: 20060626
  2. ACETYLSALICYLIC ACID  ^BAYER^ (ACETYLSALICYLIC ACID) [Suspect]
     Indication: PROPHYLAXIS
     Dosage: 325 MG (325 MG, 1 IN 1 D) ,ORAL
     Route: 048
     Dates: start: 20060124
  3. HYZAAR [Concomitant]
  4. GLUCOVANCE (GLIBENCLAMIDE, METFORMIN HYDRCHLORIDE) [Concomitant]
  5. ALTACE [Concomitant]
  6. COREG [Concomitant]

REACTIONS (5)
  - ABDOMINAL DISTENSION [None]
  - BREAST ENLARGEMENT [None]
  - MYOCARDIAL INFARCTION [None]
  - VAGINAL DISCHARGE [None]
  - WEIGHT INCREASED [None]
